FAERS Safety Report 5814099-9 (Version None)
Quarter: 2008Q3

REPORT INFORMATION
  Report Type: 
  Country: None (occurrence: None)
  Receive Date: 20080717
  Receipt Date: 20080125
  Transmission Date: 20090109
  Serious: No
  Sender: FDA-Public Use
  Company Number: US-BOEHRINGER INGELHEIM GMBH, GERMANY-2007-BP-04400BP

PATIENT
  Sex: Male
  Weight: 107 kg

DRUGS (46)
  1. MIRAPEX [Suspect]
     Indication: RESTLESS LEGS SYNDROME
     Route: 048
     Dates: start: 19990419, end: 20070401
  2. PRILOSEC [Concomitant]
  3. SINEMET [Concomitant]
  4. VALIUM [Concomitant]
  5. FLONASE [Concomitant]
  6. ALLEGRA [Concomitant]
  7. RESTORIL [Concomitant]
     Route: 048
  8. LOPID [Concomitant]
     Route: 048
     Dates: end: 20020701
  9. LOPID [Concomitant]
     Route: 048
     Dates: start: 20030923
  10. GLUCOPHAGE [Concomitant]
     Dates: start: 19990726
  11. TOLINASE [Concomitant]
     Indication: DIABETES MELLITUS
     Dates: end: 19991011
  12. DESIPRAMINE HCL [Concomitant]
     Indication: NEURALGIA
     Dates: start: 19991022
  13. TEMAZEPAM [Concomitant]
  14. GLYBERIDE [Concomitant]
     Dates: start: 20000301
  15. GEMFIBROZIL [Concomitant]
  16. VIAGRA [Concomitant]
  17. ACTOS [Concomitant]
     Route: 048
  18. PROZAC [Concomitant]
  19. HYDROCHLOROTHIAZIDE [Concomitant]
     Dates: end: 20030318
  20. HYDROCHLOROTHIAZIDE [Concomitant]
     Dates: start: 20030319, end: 20030922
  21. HYDROCHLOROTHIAZIDE [Concomitant]
     Dates: start: 20030923
  22. INSULIN INSULATARD NPH NORDISK [Concomitant]
  23. METFORMIN HCL [Concomitant]
  24. METAMUCIL [Concomitant]
  25. LIBRAX [Concomitant]
  26. PRINIVIL [Concomitant]
  27. LOVASTATIN [Concomitant]
  28. BENTYL [Concomitant]
     Indication: MUSCLE SPASMS
  29. LISINOPRIL [Concomitant]
     Dates: end: 20030922
  30. LISINOPRIL [Concomitant]
     Dates: start: 20030923
  31. ATENOLOL [Concomitant]
  32. TRICOR [Concomitant]
  33. LOFIBRA [Concomitant]
     Dates: end: 20051219
  34. LANTUS [Concomitant]
  35. NOVOLIN [Concomitant]
  36. NORVASC [Concomitant]
  37. MICONAZOLE NITRATE [Concomitant]
  38. AMITRIPTYLINE HCL [Concomitant]
  39. TONOCARD [Concomitant]
  40. OMEPRAZOLE [Concomitant]
  41. REGULAR INSULIN [Concomitant]
  42. REQUIP [Concomitant]
  43. ADVAIR DISKUS 100/50 [Concomitant]
  44. ATROVENT [Concomitant]
  45. ALBUTEROL ORAL INHALER [Concomitant]
  46. NIFEDIPINE [Concomitant]

REACTIONS (6)
  - DEPRESSION [None]
  - EMOTIONAL DISTRESS [None]
  - FEELING ABNORMAL [None]
  - OBSESSIVE-COMPULSIVE DISORDER [None]
  - PATHOLOGICAL GAMBLING [None]
  - SUICIDAL IDEATION [None]
